FAERS Safety Report 9137075 (Version 1)
Quarter: 2013Q1

REPORT INFORMATION
  Report Type: Spontaneous
  Country: US (occurrence: US)
  Receive Date: 20130304
  Receipt Date: 20130304
  Transmission Date: 20140127
  Serious: No
  Sender: FDA-Public Use
  Company Number: US-PFIZER INC-2013071782

PATIENT
  Age: 69 Year
  Sex: Male
  Weight: 61 kg

DRUGS (8)
  1. BOSULIF [Suspect]
     Indication: CHRONIC MYELOID LEUKAEMIA
     Dosage: 500 MG, 1X/DAY
     Route: 048
  2. PROTONIX [Concomitant]
     Dosage: 40 MG, UNK
  3. STOOL SOFTEN [Concomitant]
     Dosage: 100-30
  4. OXYCONTIN [Concomitant]
     Dosage: 10 MG, UNK
  5. FLUTICASONE [Concomitant]
     Dosage: 50 UG, UNK
  6. FLOMAX [Concomitant]
     Dosage: 0.4 MG, UNK
  7. VITAMIN D [Concomitant]
     Dosage: 1000 IU, UNK
  8. PERCOCET [Concomitant]
     Dosage: 10-325MG

REACTIONS (3)
  - Abdominal pain upper [Unknown]
  - Dizziness [Unknown]
  - Abdominal distension [Unknown]
